FAERS Safety Report 20154817 (Version 5)
Quarter: 2022Q1

REPORT INFORMATION
  Report Type: Spontaneous
  Country: FR (occurrence: FR)
  Receive Date: 20211207
  Receipt Date: 20220317
  Transmission Date: 20220423
  Serious: Yes (Other)
  Sender: FDA-Public Use
  Company Number: None

PATIENT
  Age: 85 Year
  Sex: Male
  Weight: 60 kg

DRUGS (50)
  1. GANCICLOVIR SODIUM [Suspect]
     Active Substance: GANCICLOVIR SODIUM
     Indication: Cytomegalovirus infection
     Dosage: UNK
     Route: 065
     Dates: start: 20210705, end: 20210715
  2. GANCICLOVIR SODIUM [Suspect]
     Active Substance: GANCICLOVIR SODIUM
     Indication: Escherichia infection
  3. GANCICLOVIR SODIUM [Suspect]
     Active Substance: GANCICLOVIR SODIUM
     Indication: Pneumocystis jirovecii infection
  4. GANCICLOVIR SODIUM [Suspect]
     Active Substance: GANCICLOVIR SODIUM
     Indication: Pneumonia pseudomonal
  5. METOCLOPRAMIDE HYDROCHLORIDE [Suspect]
     Active Substance: METOCLOPRAMIDE HYDROCHLORIDE
     Indication: Product used for unknown indication
     Dosage: UNK
     Route: 065
     Dates: start: 20210716
  6. METHOTREXATE [Suspect]
     Active Substance: METHOTREXATE
     Indication: Product used for unknown indication
     Dosage: 10 MG QW
     Route: 048
     Dates: start: 20210719
  7. TRIMETHOPRIM [Suspect]
     Active Substance: TRIMETHOPRIM
     Indication: Pneumonia
     Dosage: UNK
     Route: 041
     Dates: start: 20210715, end: 20210718
  8. TRIMETHOPRIM [Suspect]
     Active Substance: TRIMETHOPRIM
     Indication: Cytomegalovirus infection
  9. TRIMETHOPRIM [Suspect]
     Active Substance: TRIMETHOPRIM
     Indication: Pneumocystis jirovecii infection
  10. TRIMETHOPRIM [Suspect]
     Active Substance: TRIMETHOPRIM
     Indication: Pseudomonas infection
  11. TRIMETHOPRIM [Suspect]
     Active Substance: TRIMETHOPRIM
     Indication: Escherichia infection
  12. TRIMETHOPRIM [Suspect]
     Active Substance: TRIMETHOPRIM
     Indication: Pneumonia
  13. HEPARIN CALCIUM [Suspect]
     Active Substance: HEPARIN CALCIUM
     Indication: Product used for unknown indication
     Route: 065
     Dates: start: 20210715, end: 20210718
  14. IMIPENEM [Suspect]
     Active Substance: IMIPENEM
     Indication: Cytomegalovirus infection
     Route: 065
  15. IMIPENEM [Suspect]
     Active Substance: IMIPENEM
     Indication: Escherichia infection
  16. IMIPENEM [Suspect]
     Active Substance: IMIPENEM
     Indication: Pneumocystis jirovecii infection
  17. IMIPENEM [Suspect]
     Active Substance: IMIPENEM
     Indication: Pneumonia pseudomonal
  18. CILASTATIN SODIUM\IMIPENEM [Suspect]
     Active Substance: CILASTATIN SODIUM\IMIPENEM
     Indication: Pneumonia
     Dosage: UNK
     Route: 065
     Dates: start: 20210715
  19. CILASTATIN SODIUM\IMIPENEM [Suspect]
     Active Substance: CILASTATIN SODIUM\IMIPENEM
     Indication: Escherichia infection
     Dosage: UNK
     Route: 065
     Dates: start: 20210715
  20. CILASTATIN SODIUM\IMIPENEM [Suspect]
     Active Substance: CILASTATIN SODIUM\IMIPENEM
     Indication: Pseudomonas infection
  21. CILASTATIN SODIUM\IMIPENEM [Suspect]
     Active Substance: CILASTATIN SODIUM\IMIPENEM
     Indication: Cytomegalovirus infection
  22. CILASTATIN SODIUM\IMIPENEM [Suspect]
     Active Substance: CILASTATIN SODIUM\IMIPENEM
     Indication: Bacterial infection
  23. CILASTATIN SODIUM\IMIPENEM [Suspect]
     Active Substance: CILASTATIN SODIUM\IMIPENEM
     Indication: Pneumonia pseudomonal
  24. CILASTATIN SODIUM\IMIPENEM [Suspect]
     Active Substance: CILASTATIN SODIUM\IMIPENEM
     Indication: Pneumocystis jirovecii infection
  25. POTASSIUM CHLORIDE [Suspect]
     Active Substance: POTASSIUM CHLORIDE
     Indication: Product used for unknown indication
     Dosage: UNK (SINCE AT LEAST 16/JUL/2021)
     Route: 065
     Dates: start: 20210716
  26. LANSOPRAZOLE [Suspect]
     Active Substance: LANSOPRAZOLE
     Indication: Product used for unknown indication
     Dosage: UNK
     Route: 065
     Dates: start: 20210716
  27. VILDAGLIPTIN [Suspect]
     Active Substance: VILDAGLIPTIN
     Indication: Product used for unknown indication
     Dosage: UNK
     Route: 065
     Dates: start: 20210716
  28. FOLIC ACID [Suspect]
     Active Substance: FOLIC ACID
     Indication: Product used for unknown indication
     Dosage: UNK
     Route: 065
     Dates: start: 20210720
  29. ASPIRIN [Suspect]
     Active Substance: ASPIRIN
     Indication: Product used for unknown indication
     Dosage: UNK
     Route: 065
  30. CIPROFLOXACIN [Suspect]
     Active Substance: CIPROFLOXACIN
     Indication: Bacterial infection
     Dosage: 400 MG, QD
     Route: 041
     Dates: start: 20210716, end: 20210719
  31. SULFAMETHOXAZOLE\TRIMETHOPRIM [Suspect]
     Active Substance: SULFAMETHOXAZOLE\TRIMETHOPRIM
     Indication: Pneumonia pseudomonal
     Route: 065
     Dates: start: 20210715
  32. SULFAMETHOXAZOLE\TRIMETHOPRIM [Suspect]
     Active Substance: SULFAMETHOXAZOLE\TRIMETHOPRIM
     Indication: Cytomegalovirus infection
     Route: 065
     Dates: start: 20210718
  33. SULFAMETHOXAZOLE\TRIMETHOPRIM [Suspect]
     Active Substance: SULFAMETHOXAZOLE\TRIMETHOPRIM
     Indication: Escherichia infection
  34. SULFAMETHOXAZOLE\TRIMETHOPRIM [Suspect]
     Active Substance: SULFAMETHOXAZOLE\TRIMETHOPRIM
     Indication: Pneumocystis jirovecii infection
  35. BACTRIM [Suspect]
     Active Substance: SULFAMETHOXAZOLE\TRIMETHOPRIM
     Indication: Pneumocystis jirovecii infection
     Dosage: 800MG/160MG/DAY STR: 400/80 MG/ML?SOLUTION INJECTABLE
     Route: 041
     Dates: start: 20210715, end: 20210718
  36. BACTRIM [Suspect]
     Active Substance: SULFAMETHOXAZOLE\TRIMETHOPRIM
     Indication: Pneumonia pseudomonal
  37. BACTRIM [Suspect]
     Active Substance: SULFAMETHOXAZOLE\TRIMETHOPRIM
     Indication: Cytomegalovirus infection
  38. BACTRIM [Suspect]
     Active Substance: SULFAMETHOXAZOLE\TRIMETHOPRIM
     Indication: Escherichia infection
  39. BACTRIM [Suspect]
     Active Substance: SULFAMETHOXAZOLE\TRIMETHOPRIM
     Indication: Infection
     Dosage: 800MG/160MG/J
     Route: 041
     Dates: start: 20210715, end: 20210718
  40. CIPROFLOXACIN [Suspect]
     Active Substance: CIPROFLOXACIN
     Indication: Bacterial infection
     Dosage: 400 MG, QD
     Route: 042
     Dates: start: 20210716, end: 20210719
  41. TIOTROPIUM [Concomitant]
     Active Substance: TIOTROPIUM
     Indication: Product used for unknown indication
  42. ENALAPRIL [Concomitant]
     Active Substance: ENALAPRIL
     Indication: Product used for unknown indication
  43. FLUTICASONE FUROATE\VILANTEROL TRIFENATATE [Concomitant]
     Active Substance: FLUTICASONE FUROATE\VILANTEROL TRIFENATATE
     Indication: Product used for unknown indication
     Dosage: UNK
  44. BISOPROLOL [Concomitant]
     Active Substance: BISOPROLOL
     Indication: Product used for unknown indication
  45. ACETAMINOPHEN [Concomitant]
     Active Substance: ACETAMINOPHEN
     Indication: Product used for unknown indication
     Dosage: UNK, SINCE AT LEAST 10/06/2021
     Dates: start: 20210610
  46. LERCANIDIPINE [Concomitant]
     Active Substance: LERCANIDIPINE
     Indication: Product used for unknown indication
  47. CLOPIDOGREL [Concomitant]
     Active Substance: CLOPIDOGREL BISULFATE
     Indication: Product used for unknown indication
  48. INSULIN NOS [Concomitant]
     Active Substance: INSULIN NOS
     Indication: Product used for unknown indication
  49. PREDNISONE [Concomitant]
     Active Substance: PREDNISONE
     Indication: Product used for unknown indication
     Dosage: UNK
  50. FUROSEMIDE [Concomitant]
     Active Substance: FUROSEMIDE
     Indication: Product used for unknown indication

REACTIONS (3)
  - Leukopenia [Recovered/Resolved]
  - Neutropenia [Recovered/Resolved]
  - Product use in unapproved indication [Recovered/Resolved]

NARRATIVE: CASE EVENT DATE: 20210715
